FAERS Safety Report 18228157 (Version 2)
Quarter: 2020Q3

REPORT INFORMATION
  Report Type: Spontaneous
  Country: CN (occurrence: CN)
  Receive Date: 20200903
  Receipt Date: 20200908
  Transmission Date: 20201103
  Serious: Yes (Other)
  Sender: FDA-Public Use
  Company Number: CN-ASTRAZENECA-2020SF10330

PATIENT
  Weight: 62 kg

DRUGS (1)
  1. IMFINZI [Suspect]
     Active Substance: DURVALUMAB
     Indication: NON-SMALL CELL LUNG CANCER
     Dosage: 620MG/PERIOD
     Route: 042
     Dates: start: 20200413, end: 20200427

REACTIONS (2)
  - Neoplasm progression [Unknown]
  - Drug ineffective [Unknown]
